FAERS Safety Report 7107819-7 (Version None)
Quarter: 2010Q4

REPORT INFORMATION
  Report Type: 
  Country: None (occurrence: None)
  Receive Date: 20101117
  Receipt Date: 20101102
  Transmission Date: 20110411
  Serious: Yes (Hospitalization)
  Sender: FDA-Public Use
  Company Number: US-BAYER-201023168NA

PATIENT
  Age: 20 Year
  Sex: Female
  Weight: 57 kg

DRUGS (5)
  1. YAZ [Suspect]
     Indication: DYSMENORRHOEA
     Route: 048
     Dates: start: 20060401, end: 20070501
  2. YASMIN [Suspect]
     Indication: DYSMENORRHOEA
     Route: 048
     Dates: start: 20030101
  3. ACIPHEX [Concomitant]
     Dosage: DAILY
     Route: 048
  4. NAPROXEN [Concomitant]
     Route: 048
  5. DARVOCET-N 100 [Concomitant]
     Route: 048

REACTIONS (4)
  - ABASIA [None]
  - DEEP VEIN THROMBOSIS [None]
  - MENTAL DISORDER [None]
  - OEDEMA PERIPHERAL [None]
